FAERS Safety Report 8620882-7 (Version None)
Quarter: 2012Q3

REPORT INFORMATION
  Report Type: 
  Country: None (occurrence: None)
  Receive Date: 20120820
  Receipt Date: 20120820
  Transmission Date: 20120928
  Serious: Yes (Life-Threatening, Hospitalization, Disabling)
  Sender: FDA-Public Use
  Company Number: None

PATIENT
  Age: 61 Year
  Sex: Female
  Weight: 54.4316 kg

DRUGS (1)
  1. LAMOTRIGINE [Suspect]
     Indication: DEPRESSION
     Dates: start: 20120607, end: 20120616

REACTIONS (7)
  - NEOPLASM MALIGNANT [None]
  - RASH [None]
  - INCOHERENT [None]
  - NAUSEA [None]
  - LYMPHADENOPATHY [None]
  - BODY TEMPERATURE INCREASED [None]
  - PNEUMONIA [None]
